FAERS Safety Report 7759019-5 (Version None)
Quarter: 2011Q3

REPORT INFORMATION
  Report Type: 
  Country: None (occurrence: None)
  Receive Date: 20110915
  Receipt Date: 20110905
  Transmission Date: 20111222
  Serious: Yes (Other)
  Sender: FDA-Public Use
  Company Number: CIO11000795

PATIENT
  Age: 77 Year
  Sex: Female
  Weight: 62.1 kg

DRUGS (11)
  1. SYNTHROID [Concomitant]
  2. LORTADINE (LORATADINE) [Concomitant]
  3. EYE DROP [Concomitant]
  4. CALTRATE PLUS /01438001/ (CALCIUM, COLECALCIFEROL, COPPER, MAGNESIUM, [Suspect]
     Dosage: 1 TABLET, 1/DAY, ORAL
     Route: 048
     Dates: start: 20041213
  5. CALCIUM CARBONATE [Concomitant]
  6. VITAMIN B-12 [Concomitant]
  7. TYLENOL /00020001 (PARACETAMOL) [Concomitant]
  8. METAMUCIL-2 [Suspect]
     Indication: NUTRITIONAL SUPPORT
     Dosage: 1 TSP, 1/DAY, ORAL
     Route: 048
     Dates: start: 20110108, end: 20110110
  9. PREMARIN [Concomitant]
  10. VITAMINS /90003601/ [Concomitant]
  11. ASPIRIN [Concomitant]

REACTIONS (18)
  - CHEST DISCOMFORT [None]
  - BLOOD PRESSURE DECREASED [None]
  - ATRIOVENTRICULAR BLOCK FIRST DEGREE [None]
  - NEUTROPHIL COUNT INCREASED [None]
  - LYMPHOCYTE COUNT DECREASED [None]
  - HEART RATE INCREASED [None]
  - PALPITATIONS [None]
  - FOREIGN BODY [None]
  - SUPRAVENTRICULAR TACHYCARDIA [None]
  - DYSPNOEA [None]
  - NAUSEA [None]
  - CHRONIC OBSTRUCTIVE PULMONARY DISEASE [None]
  - CHEST PAIN [None]
  - ASTHENIA [None]
  - URINE LEUKOCYTE ESTERASE POSITIVE [None]
  - ERUCTATION [None]
  - SINUS TACHYCARDIA [None]
  - ALANINE AMINOTRANSFERASE DECREASED [None]
